FAERS Safety Report 25723787 (Version 2)
Quarter: 2025Q3

REPORT INFORMATION
  Report Type: Report from Study
  Country: EG (occurrence: EG)
  Receive Date: 20250825
  Receipt Date: 20250902
  Transmission Date: 20251021
  Serious: Yes (Other)
  Sender: NOVARTIS
  Company Number: EG-002147023-NVSC2025EG123595

PATIENT
  Age: 54 Year
  Sex: Female
  Weight: 87 kg

DRUGS (6)
  1. KISQALI [Suspect]
     Active Substance: RIBOCICLIB SUCCINATE
     Indication: Breast cancer metastatic
     Dosage: 200 MG, QD, 2 TABLET ONCE FOR 21 DAYS AND ONE WEEK OFF
     Route: 048
     Dates: start: 202504, end: 202504
  2. KISQALI [Suspect]
     Active Substance: RIBOCICLIB SUCCINATE
     Route: 048
  3. FEMARA [Suspect]
     Active Substance: LETROZOLE
     Indication: Breast cancer metastatic
     Dosage: UNK, QD (TABLET)
     Route: 048
     Dates: start: 202503
  4. EUTHYROX [Concomitant]
     Active Substance: LEVOTHYROXINE SODIUM
     Indication: Thyroid disorder
     Dosage: 100 MG, QD (TABLET) (10 YEARS OR MORE)
     Route: 048
  5. B12 [Concomitant]
     Indication: Neuropathy peripheral
     Dosage: UNK, QD (TABLET)
     Route: 048
     Dates: start: 202408
  6. NEXIUM [Concomitant]
     Active Substance: ESOMEPRAZOLE MAGNESIUM
     Indication: Abdominal discomfort
     Dosage: UNK, QD (TABLET)
     Route: 048
     Dates: start: 202408

REACTIONS (5)
  - Hepatic enzyme increased [Recovered/Resolved]
  - Osteoporosis [Not Recovered/Not Resolved]
  - Hepatic enzyme increased [Not Recovered/Not Resolved]
  - Off label use [Unknown]
  - Hypoaesthesia [Recovering/Resolving]

NARRATIVE: CASE EVENT DATE: 20250401
